FAERS Safety Report 8299762-5 (Version None)
Quarter: 2012Q2

REPORT INFORMATION
  Report Type: 
  Country: None (occurrence: None)
  Receive Date: 20120419
  Receipt Date: 20120411
  Transmission Date: 20120825
  Serious: Yes (Hospitalization)
  Sender: FDA-Public Use
  Company Number: US-MERCK-1201USA02842

PATIENT
  Age: 45 Year
  Sex: Female

DRUGS (2)
  1. ALENDRONATE SODIUM [Suspect]
     Indication: OSTEOPOROSIS
     Route: 048
     Dates: start: 20080602, end: 20110401
  2. FOSAMAX [Suspect]
     Indication: OSTEOPOROSIS
     Route: 048
     Dates: start: 20010408, end: 20080601

REACTIONS (5)
  - FEMUR FRACTURE [None]
  - VITAMIN D DEFICIENCY [None]
  - RHEUMATOID ARTHRITIS [None]
  - LOW TURNOVER OSTEOPATHY [None]
  - TOOTH DISORDER [None]
